FAERS Safety Report 4745017-2 (Version None)
Quarter: 2005Q3

REPORT INFORMATION
  Report Type: 
  Country: None (occurrence: None)
  Receive Date: 20050811
  Receipt Date: 20050802
  Transmission Date: 20060218
  Serious: Yes (Life-Threatening, Other)
  Sender: FDA-Public Use
  Company Number: 2005110220

PATIENT
  Age: 16 Year
  Sex: Female
  Weight: 52.1637 kg

DRUGS (3)
  1. ZITHROMAX [Suspect]
     Indication: GONORRHOEA
     Dosage: 2 GRAM (1 GRAM), ORAL
     Route: 048
     Dates: start: 20050802, end: 20050802
  2. ZOLOFT [Concomitant]
  3. ALL OTHER THERAPEUTIC PRODUCTS (ALL OTHER THERAPEUTIC PRODUCTS) [Concomitant]

REACTIONS (3)
  - ABDOMINAL PAIN [None]
  - CONVULSION [None]
  - RESPIRATORY ARREST [None]
